FAERS Safety Report 15789281 (Version 2)
Quarter: 2019Q3

REPORT INFORMATION
  Report Type: Spontaneous
  Country: US (occurrence: US)
  Receive Date: 20190104
  Receipt Date: 20190708
  Transmission Date: 20191004
  Serious: No
  Sender: FDA-Public Use
  Company Number: US-MYLANLABS-2018M1092242

PATIENT
  Age: 66 Year
  Sex: Male
  Weight: 109.76 kg

DRUGS (1)
  1. LIDOCAINE PATCH [Suspect]
     Active Substance: LIDOCAINE
     Indication: PAIN
     Dosage: UNK
     Route: 003

REACTIONS (2)
  - Off label use [Not Recovered/Not Resolved]
  - Product colour issue [Recovering/Resolving]

NARRATIVE: CASE EVENT DATE: 20181114
